FAERS Safety Report 9842739 (Version 2)
Quarter: 2014Q1

REPORT INFORMATION
  Report Type: Spontaneous
  Country: BR (occurrence: BR)
  Receive Date: 20140124
  Receipt Date: 20140124
  Transmission Date: 20141002
  Serious: Yes (Other)
  Sender: FDA-Public Use
  Company Number: BR-ABBVIE-12P-020-0997162-00

PATIENT
  Sex: Male

DRUGS (1)
  1. HUMIRA [Suspect]
     Route: 064

REACTIONS (3)
  - Premature baby [Unknown]
  - Foetal exposure during pregnancy [Unknown]
  - Psychomotor hyperactivity [Unknown]
